FAERS Safety Report 19094589 (Version 1)
Quarter: 2021Q2

REPORT INFORMATION
  Report Type: Spontaneous
  Country: DE (occurrence: DE)
  Receive Date: 20210405
  Receipt Date: 20210405
  Transmission Date: 20210717
  Serious: No
  Sender: FDA-Public Use
  Company Number: DE-JAZZ-2021-DE-004947

PATIENT
  Age: 37 Year
  Sex: Female
  Weight: 69 kg

DRUGS (9)
  1. ELONTRIL [Concomitant]
     Active Substance: BUPROPION HYDROCHLORIDE
  2. PRAMIPEXOL [PRAMIPEXOLE] [Concomitant]
     Active Substance: PRAMIPEXOLE
     Dosage: BEI BEDARF () ; AS NECESSARY
  3. SUNOSI [Suspect]
     Active Substance: SOLRIAMFETOL
     Indication: NARCOLEPSY
     Dosage: 150 MILLIGRAM
     Route: 048
     Dates: start: 20201115, end: 20201215
  4. IBUPROFEN. [Concomitant]
     Active Substance: IBUPROFEN
     Dosage: BEI BEDARF ()
  5. SUNOSI [Suspect]
     Active Substance: SOLRIAMFETOL
     Indication: SOMNOLENCE
  6. NOVALGIN (METAMIZOLE SODIUM) [Concomitant]
     Active Substance: METAMIZOLE SODIUM
     Dosage: 2X/TAG
  7. ORTOTON [METHOCARBAMOL] [Concomitant]
     Active Substance: METHOCARBAMOL
     Dosage: BEI BEDARF () ; AS NECESSARY
  8. VENLAFAXIN [Concomitant]
     Active Substance: VENLAFAXINE HYDROCHLORIDE
  9. ASPIRIN (E.C.) [Concomitant]
     Active Substance: ASPIRIN
     Dosage: BEI BEDARF () ; AS NECESSARY

REACTIONS (7)
  - Poor quality sleep [Unknown]
  - Boredom [Recovered/Resolved]
  - Loss of personal independence in daily activities [Recovered/Resolved]
  - Depressed mood [Recovered/Resolved]
  - Bedridden [Recovered/Resolved]
  - Somnolence [Unknown]
  - Feeling abnormal [Recovered/Resolved]

NARRATIVE: CASE EVENT DATE: 2020
